FAERS Safety Report 7399057-8 (Version None)
Quarter: 2011Q1

REPORT INFORMATION
  Report Type: 
  Country: None (occurrence: None)
  Receive Date: 20110328
  Receipt Date: 20110315
  Transmission Date: 20110831
  Serious: Yes (Other)
  Sender: FDA-Public Use
  Company Number: 857161

PATIENT

DRUGS (1)
  1. METHYLPREDNISOLONE SODIUM SUCCINATE FOR INJECTION, 125 MG/VIAL (A-METH [Suspect]
     Indication: PRODUCT USED FOR UNKNOWN INDICATION

REACTIONS (1)
  - URTICARIA [None]
